FAERS Safety Report 14954852 (Version 2)
Quarter: 2018Q2

REPORT INFORMATION
  Report Type: Spontaneous
  Country: MX (occurrence: MX)
  Receive Date: 20180530
  Receipt Date: 20180614
  Transmission Date: 20180711
  Serious: Yes (Other)
  Sender: FDA-Public Use
  Company Number: MX-BEH-2018091162

PATIENT
  Age: 27 Month
  Sex: Female
  Weight: 9.14 kg

DRUGS (2)
  1. HIGLOBIN [Suspect]
     Active Substance: HUMAN IMMUNOGLOBULIN G
     Indication: PNEUMONIA
  2. HIGLOBIN [Suspect]
     Active Substance: HUMAN IMMUNOGLOBULIN G
     Indication: IMMUNODEFICIENCY
     Dosage: 5 G, UNK
     Route: 042
     Dates: start: 20180422, end: 20180422

REACTIONS (6)
  - Erythema [Unknown]
  - Injection site erythema [Unknown]
  - Rash [Unknown]
  - Tachypnoea [Unknown]
  - Apnoea [Unknown]
  - Hyperhidrosis [Unknown]

NARRATIVE: CASE EVENT DATE: 20180422
